FAERS Safety Report 6466696-8 (Version None)
Quarter: 2009Q4

REPORT INFORMATION
  Report Type: 
  Country: None (occurrence: None)
  Receive Date: 20091202
  Receipt Date: 20091117
  Transmission Date: 20100525
  Serious: Yes (Hospitalization)
  Sender: FDA-Public Use
  Company Number: FR-ELI_LILLY_AND_COMPANY-FR200911004273

PATIENT
  Sex: Female

DRUGS (7)
  1. PROZAC [Suspect]
     Indication: DEPRESSION
     Dosage: 1 D/F, DAILY (1/D)
     Route: 048
  2. ENBREL [Concomitant]
     Indication: RHEUMATOID ARTHRITIS
     Dosage: 50 MG, WEEKLY (1/W)
     Route: 042
     Dates: start: 20070101, end: 20080801
  3. CORTANCYL [Concomitant]
     Indication: RHEUMATOID ARTHRITIS
     Dosage: 5 MG, DAILY (1/D)
     Route: 048
  4. TERCIAN [Concomitant]
     Indication: DEPRESSION
     Dosage: 25 MG, DAILY (1/D)
     Route: 048
  5. TETRAZEPAM [Concomitant]
     Indication: MYALGIA
     Dosage: 1 D/F, DAILY (1/D)
     Route: 048
  6. LEXOMIL [Concomitant]
     Indication: DEPRESSION
     Dosage: 0.5 D/F, DAILY (1/D)
     Route: 048
  7. TRANXENE [Concomitant]
     Indication: DEPRESSION
     Dosage: 10 MG, 4/D
     Route: 048

REACTIONS (1)
  - EPILEPSY [None]
